FAERS Safety Report 9790131 (Version 3)
Quarter: 2014Q2

REPORT INFORMATION
  Report Type: Report from Study
  Country: JP (occurrence: JP)
  Receive Date: 20131231
  Receipt Date: 20140609
  Transmission Date: 20141212
  Serious: Yes (Hospitalization, Other)
  Sender: FDA-Public Use
  Company Number: JP-ASTELLAS-2012JP002692

PATIENT
  Age: 71 Year
  Sex: Female

DRUGS (41)
  1. TACROLIMUS [Suspect]
     Indication: LUPUS NEPHRITIS
     Route: 048
     Dates: start: 20080814
  2. PREDNISOLONE [Suspect]
     Indication: LUPUS NEPHRITIS
     Route: 048
     Dates: end: 20091111
  3. PREDNISOLONE [Suspect]
     Route: 048
     Dates: start: 20091112, end: 20101006
  4. PREDNISOLONE [Suspect]
     Route: 048
     Dates: start: 20101007, end: 20111012
  5. PREDNISOLONE [Suspect]
     Route: 048
     Dates: start: 20111013, end: 20120328
  6. PREDNISOLONE [Suspect]
     Route: 048
     Dates: start: 20120329, end: 20130410
  7. PREDNISOLONE [Suspect]
     Route: 048
     Dates: start: 20130411, end: 20130814
  8. PREDNISOLONE [Suspect]
     Route: 048
     Dates: start: 20130815
  9. JUVELA N [Concomitant]
     Indication: PERIPHERAL CIRCULATORY FAILURE
     Route: 048
     Dates: end: 20111207
  10. SELBEX [Concomitant]
     Indication: PROPHYLAXIS
     Route: 048
     Dates: end: 20090805
  11. SELBEX [Concomitant]
     Route: 048
     Dates: start: 20090903, end: 20091209
  12. SELBEX [Concomitant]
     Route: 048
     Dates: start: 20100408, end: 20110112
  13. METHYCOBAL [Concomitant]
     Indication: NEUROPATHY PERIPHERAL
     Route: 048
     Dates: end: 20111207
  14. WARFARIN [Concomitant]
     Indication: PROPHYLAXIS
     Route: 048
     Dates: end: 20100203
  15. WARFARIN [Concomitant]
     Route: 048
     Dates: start: 20100204, end: 20100407
  16. WARFARIN [Concomitant]
     Route: 048
     Dates: start: 20100408, end: 20100512
  17. WARFARIN [Concomitant]
     Route: 048
     Dates: start: 20100513, end: 20100609
  18. WARFARIN [Concomitant]
     Route: 048
     Dates: start: 20100610, end: 20120912
  19. WARFARIN [Concomitant]
     Route: 048
     Dates: start: 20120913, end: 20130703
  20. WARFARIN [Concomitant]
     Route: 048
     Dates: start: 20130704
  21. LOCHOL [Concomitant]
     Indication: HYPERCHOLESTEROLAEMIA
     Route: 048
     Dates: end: 20090805
  22. LOCHOL [Concomitant]
     Route: 048
     Dates: start: 20090903, end: 20100203
  23. LOCHOL [Concomitant]
     Route: 048
     Dates: start: 20110630, end: 20120718
  24. BLOSTAR M [Concomitant]
     Indication: PROPHYLAXIS
     Route: 048
     Dates: end: 20120718
  25. BLOSTAR M [Concomitant]
     Route: 048
     Dates: start: 20120719
  26. BONALON [Concomitant]
     Indication: OSTEOPOROSIS
     Route: 048
     Dates: end: 20101110
  27. BONALON [Concomitant]
     Indication: PROPHYLAXIS
     Route: 048
     Dates: start: 20110407, end: 20111012
  28. BONALON [Concomitant]
     Route: 048
     Dates: start: 20130704
  29. VONFENAC [Concomitant]
     Indication: BACK PAIN
     Dosage: ??
     Route: 054
     Dates: end: 20080910
  30. VONFENAC [Concomitant]
     Indication: RIB FRACTURE
     Route: 054
     Dates: start: 20130411, end: 20130522
  31. PURSENNID [Concomitant]
     Indication: CONSTIPATION
     Route: 048
     Dates: start: 20081106, end: 20090204
  32. PURSENNID [Concomitant]
     Route: 048
     Dates: start: 20090709, end: 20090902
  33. TOYOFAROL [Concomitant]
     Indication: OSTEOPOROSIS
     Dosage: 0.25 ?G, ONCE DAILY
     Route: 048
     Dates: start: 20111207
  34. TOYOFAROL [Concomitant]
     Indication: PROPHYLAXIS
  35. FORTEO [Concomitant]
     Indication: OSTEOPOROSIS
     Route: 065
     Dates: start: 20111012, end: 20130703
  36. FORTEO [Concomitant]
     Indication: PROPHYLAXIS
  37. LORFENAMIN [Concomitant]
     Indication: GINGIVAL PAIN
     Route: 048
     Dates: start: 20110215, end: 20110217
  38. LORFENAMIN [Concomitant]
     Indication: RIB FRACTURE
     Route: 048
     Dates: start: 2013
  39. MAGNESIUM OXIDE [Concomitant]
     Indication: ILEUS
     Route: 048
     Dates: start: 20120824, end: 20130116
  40. MAGNESIUM OXIDE [Concomitant]
     Indication: CONSTIPATION
     Route: 048
     Dates: start: 20130117
  41. PL GRAN. [Concomitant]
     Indication: NASOPHARYNGITIS
     Route: 048
     Dates: start: 20130228, end: 20130304

REACTIONS (5)
  - Ileus [Recovered/Resolved]
  - Constipation [Not Recovered/Not Resolved]
  - Rib fracture [Recovered/Resolved]
  - Nasopharyngitis [Recovered/Resolved]
  - Gingival pain [Recovered/Resolved]
